FAERS Safety Report 5981748-4 (Version None)
Quarter: 2008Q4

REPORT INFORMATION
  Report Type: 
  Country: None (occurrence: None)
  Receive Date: 20081205
  Receipt Date: 20081202
  Transmission Date: 20090506
  Serious: No
  Sender: FDA-Public Use
  Company Number: US-B.I. PHARMACEUTICALS,INC./RIDGEFIELD-2008-BP-18109BP

PATIENT
  Sex: Male

DRUGS (9)
  1. SPIRIVA [Suspect]
     Indication: LUNG DISORDER
     Dosage: 18MCG
     Route: 055
     Dates: start: 20080801
  2. LASIX [Concomitant]
     Dosage: 40MG
  3. LIPITOR [Concomitant]
     Indication: BLOOD CHOLESTEROL INCREASED
     Dosage: 80MG
  4. COREG [Concomitant]
     Dosage: 40MG
  5. ALDACTONE [Concomitant]
     Dosage: 25MG
  6. AMIODARONE HCL [Concomitant]
     Dosage: 200MG
  7. UROXATRAL [Concomitant]
  8. ALTACE [Concomitant]
  9. VITAMINS [Concomitant]

REACTIONS (2)
  - DYSPHONIA [None]
  - NIPPLE PAIN [None]
